FAERS Safety Report 23089130 (Version 1)
Quarter: 2023Q4

REPORT INFORMATION
  Report Type: Spontaneous
  Country: US (occurrence: None)
  Receive Date: 20231019
  Receipt Date: 20231019
  Transmission Date: 20240110
  Serious: Yes (unspecified)
  Sender: FDA-Public Use
  Company Number: None

PATIENT
  Age: 40 Year
  Sex: Female
  Weight: 97.65 kg

DRUGS (1)
  1. MELOXICAM [Suspect]
     Active Substance: MELOXICAM
     Indication: Skin ulcer
     Dosage: OTHER QUANTITY : 1 TABLET(S);?FREQUENCY : DAILY;?
     Route: 048
     Dates: start: 20231006, end: 20231017

REACTIONS (10)
  - Renal pain [None]
  - Urine output decreased [None]
  - Abdominal distension [None]
  - Abdominal pain upper [None]
  - Constipation [None]
  - Peripheral swelling [None]
  - Pain in extremity [None]
  - Arthralgia [None]
  - Dysphagia [None]
  - Tonsillolith [None]

NARRATIVE: CASE EVENT DATE: 20231013
